FAERS Safety Report 8436030-2 (Version None)
Quarter: 2012Q2

REPORT INFORMATION
  Report Type: 
  Country: None (occurrence: None)
  Receive Date: 20120614
  Receipt Date: 20120607
  Transmission Date: 20120825
  Serious: Yes (Hospitalization, Other)
  Sender: FDA-Public Use
  Company Number: DE-ABBOTT-12P-062-0944591-00

PATIENT
  Weight: 85 kg

DRUGS (1)
  1. HUMIRA [Suspect]
     Indication: CROHN'S DISEASE
     Route: 058
     Dates: start: 20110830, end: 20120311

REACTIONS (8)
  - STAPHYLOCOCCAL INFECTION [None]
  - ENDOCARDITIS [None]
  - SEPTIC ENCEPHALOPATHY [None]
  - GENERAL PHYSICAL HEALTH DETERIORATION [None]
  - RENAL FAILURE ACUTE [None]
  - INFECTION [None]
  - ABDOMINAL PAIN [None]
  - BLADDER PAIN [None]
